FAERS Safety Report 18464903 (Version 2)
Quarter: 2021Q1

REPORT INFORMATION
  Report Type: Other
  Country: US (occurrence: US)
  Receive Date: 20201104
  Receipt Date: 20210202
  Transmission Date: 20210419
  Serious: Yes (Hospitalization, Other)
  Sender: FDA-Public Use
  Company Number: US-AMAG PHARMACEUTICALS, INC.-AMAG202003637

PATIENT
  Age: 32 Year
  Sex: Female

DRUGS (3)
  1. PHENERGAN [Concomitant]
     Active Substance: PROMETHAZINE HYDROCHLORIDE
     Indication: NAUSEA
     Dates: start: 20200706, end: 20200909
  2. VITAMIN B6 [Concomitant]
     Active Substance: PYRIDOXINE HYDROCHLORIDE
     Indication: NAUSEA
     Dates: start: 20200706, end: 20201007
  3. MAKENA [Suspect]
     Active Substance: HYDROXYPROGESTERONE CAPROATE
     Indication: PREMATURE DELIVERY
     Route: 058
     Dates: start: 20200814, end: 20201007

REACTIONS (6)
  - Premature labour [Recovered/Resolved]
  - Premature delivery [Recovered/Resolved]
  - Funisitis [Unknown]
  - Vasculitis [Unknown]
  - Amniotic cavity infection [Unknown]
  - Subchorionic haemorrhage [Unknown]

NARRATIVE: CASE EVENT DATE: 2020
